FAERS Safety Report 4471694-X (Version None)
Quarter: 2004Q4

REPORT INFORMATION
  Report Type: 
  Country: None (occurrence: None)
  Receive Date: 20041007
  Receipt Date: 20040921
  Transmission Date: 20050328
  Serious: Yes (Death, Hospitalization)
  Sender: FDA-Public Use
  Company Number: 2003AP03998

PATIENT
  Age: 30 Year
  Sex: Male

DRUGS (7)
  1. IRESSA [Suspect]
     Indication: LUNG SQUAMOUS CELL CARCINOMA STAGE UNSPECIFIED
     Dosage: 250 MG DAILY PO
     Route: 048
     Dates: start: 20020830, end: 20021023
  2. CISPLATIN [Concomitant]
  3. TAXOL [Concomitant]
  4. PARAPLATIN [Concomitant]
  5. RADIATION THERAPY [Concomitant]
  6. VINORELBINE TARTRATE [Concomitant]
  7. GEMZAR [Concomitant]

REACTIONS (5)
  - CONDITION AGGRAVATED [None]
  - INTERSTITIAL LUNG DISEASE [None]
  - METASTASES TO LUNG [None]
  - PLEURAL EFFUSION [None]
  - PNEUMONIA BACTERIAL [None]
